FAERS Safety Report 20179718 (Version 5)
Quarter: 2022Q3

REPORT INFORMATION
  Report Type: Report from Study
  Country: MX (occurrence: MX)
  Receive Date: 20211214
  Receipt Date: 20220906
  Transmission Date: 20221027
  Serious: Yes (Other)
  Sender: FDA-Public Use
  Company Number: MX-NOVARTISPH-NVSC2021MX278488

PATIENT
  Age: 29 Year
  Sex: Female
  Weight: 95 kg

DRUGS (12)
  1. ELTROMBOPAG OLAMINE [Suspect]
     Active Substance: ELTROMBOPAG OLAMINE
     Indication: Thrombocytopenic purpura
     Dosage: UNK, QD (? TABLET DAILY)
     Route: 065
  2. ELTROMBOPAG OLAMINE [Suspect]
     Active Substance: ELTROMBOPAG OLAMINE
     Indication: Immune thrombocytopenia
     Dosage: 50 MG, QD (1 DF)
     Route: 048
     Dates: start: 20211110
  3. ELTROMBOPAG OLAMINE [Suspect]
     Active Substance: ELTROMBOPAG OLAMINE
     Dosage: 25 MG QD, 1 DF (ACCORDING TO THE LEVEL S OF PLATE LETS THE DOSE IS ADJUST )
     Route: 065
  4. ELTROMBOPAG OLAMINE [Suspect]
     Active Substance: ELTROMBOPAG OLAMINE
     Dosage: 25 MG, QD 1 DF
     Route: 048
     Dates: start: 20211110
  5. ELTROMBOPAG OLAMINE [Suspect]
     Active Substance: ELTROMBOPAG OLAMINE
     Dosage: 25 MG, QD 1 DF
     Route: 048
  6. ELTROMBOPAG OLAMINE [Suspect]
     Active Substance: ELTROMBOPAG OLAMINE
     Dosage: 1 DOSAGE FORM, EVERY THIRD DAY
     Route: 048
     Dates: start: 202204, end: 202205
  7. ELTROMBOPAG OLAMINE [Suspect]
     Active Substance: ELTROMBOPAG OLAMINE
     Dosage: 0.5 DOSAGE FORM, EVERY THIRD DAY
     Route: 048
     Dates: start: 202205
  8. ELTROMBOPAG OLAMINE [Suspect]
     Active Substance: ELTROMBOPAG OLAMINE
     Dosage: 1 DOSAGE FORM (25 MG) (ONE COMPLETE TABLE 2 TIMES A WEEK AND THE NEXT ONE IS HALF TABLET 2 TIMES A W
     Route: 065
     Dates: start: 20211110
  9. ELTROMBOPAG OLAMINE [Suspect]
     Active Substance: ELTROMBOPAG OLAMINE
     Dosage: 1 DOSAGE FORM (ONE COMPLETE TABLE 2 TIMES A WEEK AND THE NEXT ONE IS HALF TABLET 2 TIMES A WEEK)
     Route: 065
     Dates: start: 20220819
  10. PREDNISONE [Concomitant]
     Active Substance: PREDNISONE
     Indication: Thrombocytopenic purpura
     Dosage: UNK, QD (? TABLET)
     Route: 048
  11. PREDNISONE [Concomitant]
     Active Substance: PREDNISONE
     Dosage: 50 MG, QD
     Route: 048
     Dates: start: 202104, end: 202111
  12. IMURAN [Concomitant]
     Active Substance: AZATHIOPRINE
     Indication: Thrombocytopenic purpura
     Dosage: 50 MG, QD
     Route: 048
     Dates: start: 202105, end: 202111

REACTIONS (18)
  - Cushing^s syndrome [Not Recovered/Not Resolved]
  - Cushingoid [Recovered/Resolved]
  - Lid sulcus deepened [Not Recovered/Not Resolved]
  - Fat tissue increased [Not Recovered/Not Resolved]
  - Acne [Not Recovered/Not Resolved]
  - Hair texture abnormal [Not Recovered/Not Resolved]
  - Mood altered [Not Recovered/Not Resolved]
  - Weight increased [Not Recovered/Not Resolved]
  - Hypertrichosis [Not Recovered/Not Resolved]
  - Alopecia [Not Recovered/Not Resolved]
  - Disease recurrence [Recovered/Resolved]
  - Swelling [Not Recovered/Not Resolved]
  - Wrong technique in product usage process [Not Recovered/Not Resolved]
  - Platelet count increased [Unknown]
  - Intentional product use issue [Not Recovered/Not Resolved]
  - Influenza [Recovered/Resolved]
  - Headache [Recovered/Resolved]
  - Poor quality sleep [Not Recovered/Not Resolved]

NARRATIVE: CASE EVENT DATE: 20210601
